FAERS Safety Report 5955000-7 (Version None)
Quarter: 2008Q4

REPORT INFORMATION
  Report Type: 
  Country: None (occurrence: None)
  Receive Date: 20081113
  Receipt Date: 20081113
  Transmission Date: 20090506
  Serious: Yes (Other)
  Sender: FDA-Public Use
  Company Number: None

PATIENT

DRUGS (1)
  1. CHANTIX [Suspect]
     Indication: SMOKING CESSATION THERAPY

REACTIONS (13)
  - ABNORMAL BEHAVIOUR [None]
  - AGITATION [None]
  - ANGER [None]
  - CRYING [None]
  - GASTRIC DISORDER [None]
  - HYPERTENSION [None]
  - IMPAIRED WORK ABILITY [None]
  - MARITAL PROBLEM [None]
  - SLEEP DISORDER [None]
  - SLEEP TERROR [None]
  - SUICIDE ATTEMPT [None]
  - THINKING ABNORMAL [None]
  - VOMITING [None]
